FAERS Safety Report 5926291-3 (Version None)
Quarter: 2008Q4

REPORT INFORMATION
  Report Type: 
  Country: None (occurrence: None)
  Receive Date: 20081022
  Receipt Date: 20081013
  Transmission Date: 20090506
  Serious: Yes (Hospitalization)
  Sender: FDA-Public Use
  Company Number: US-JNJFOC-20081003598

PATIENT
  Sex: Female
  Weight: 113.85 kg

DRUGS (19)
  1. FENTANYL TRANSDERMAL SYSTEM [Suspect]
     Indication: ARTHRALGIA
     Route: 062
  2. FENTANYL TRANSDERMAL SYSTEM [Suspect]
     Indication: ARTHRITIS
     Route: 062
  3. FENTANYL TRANSDERMAL SYSTEM [Suspect]
     Indication: OSTEOPOROSIS
     Route: 062
  4. ESTRADIOL [Concomitant]
     Indication: HORMONE REPLACEMENT THERAPY
     Route: 048
  5. LIPITOR [Concomitant]
     Indication: BLOOD CHOLESTEROL INCREASED
     Route: 048
  6. WELLBUTRIN XL [Concomitant]
     Indication: BIPOLAR DISORDER
     Route: 048
  7. CALCIUM AND VITAMIN D [Concomitant]
     Indication: MINERAL SUPPLEMENTATION
     Route: 048
  8. CALCIUM AND VITAMIN D [Concomitant]
     Indication: VITAMIN SUPPLEMENTATION
     Dosage: 500 MG/200 MG
     Route: 048
  9. NEXIUM [Concomitant]
     Indication: GASTROOESOPHAGEAL REFLUX DISEASE
     Route: 048
  10. PROZAC [Concomitant]
     Indication: BIPOLAR DISORDER
     Route: 048
  11. MAGNESIUM SULFATE [Concomitant]
     Indication: CARDIAC DISORDER
     Route: 048
  12. SYNTHROID [Concomitant]
     Indication: POSTOPERATIVE CARE
     Route: 048
  13. ALBUTEROL [Concomitant]
     Indication: ASTHMA
     Dosage: 2 PUFFS
     Route: 055
  14. ASPIRIN [Concomitant]
     Indication: CARDIAC DISORDER
     Route: 048
  15. METFORMIN HYDROCHLORIDE [Concomitant]
     Indication: DIABETES MELLITUS
     Route: 048
  16. NAPROXEN [Concomitant]
     Indication: ARTHRITIS
     Route: 048
  17. POTASSIUM CHLORIDE [Concomitant]
     Indication: MEDICAL DIET
     Route: 048
  18. DIOVAN [Concomitant]
     Indication: HYPERTENSION
     Route: 048
  19. AMBIEN [Concomitant]
     Indication: SLEEP DISORDER
     Route: 048

REACTIONS (2)
  - APPLICATION SITE IRRITATION [None]
  - THYROID CANCER [None]
